FAERS Safety Report 4676990-9 (Version None)
Quarter: 2005Q2

REPORT INFORMATION
  Report Type: 
  Country: None (occurrence: None)
  Receive Date: 20050526
  Receipt Date: 20050520
  Transmission Date: 20051028
  Serious: Yes (Life-Threatening, Hospitalization, Other)
  Sender: FDA-Public Use
  Company Number: 2005057343

PATIENT
  Age: 25 Year
  Sex: Male
  Weight: 70 kg

DRUGS (1)
  1. SOLU-MEDROL [Suspect]
     Indication: SPINAL HAEMATOMA
     Dosage: 2 GRAM (1 IN 1 D), INTRAVENOUS
     Route: 042
     Dates: start: 20041030, end: 20041030

REACTIONS (5)
  - HYPERTHYROIDISM [None]
  - HYPOKALAEMIA [None]
  - THERAPY NON-RESPONDER [None]
  - VENTRICULAR EXTRASYSTOLES [None]
  - VENTRICULAR FIBRILLATION [None]
